FAERS Safety Report 19101300 (Version 2)
Quarter: 2021Q2

REPORT INFORMATION
  Report Type: Spontaneous
  Country: US (occurrence: US)
  Receive Date: 20210407
  Receipt Date: 20210421
  Transmission Date: 20210717
  Serious: No
  Sender: FDA-Public Use
  Company Number: US-ASTRAZENECA-2021A262419

PATIENT
  Sex: Female

DRUGS (1)
  1. BYDUREON BCISE [Suspect]
     Active Substance: EXENATIDE
     Dosage: UNKNOWN
     Route: 058

REACTIONS (7)
  - Blood glucose increased [Unknown]
  - Injection site extravasation [Unknown]
  - Dizziness [Unknown]
  - Wrong technique in product usage process [Unknown]
  - Device issue [Recovered/Resolved]
  - Injection site haemorrhage [Unknown]
  - Product dose omission issue [Unknown]
